FAERS Safety Report 7586902-6 (Version None)
Quarter: 2011Q3

REPORT INFORMATION
  Report Type: 
  Country: None (occurrence: None)
  Receive Date: 20110701
  Receipt Date: 20110620
  Transmission Date: 20111222
  Serious: Yes (Hospitalization)
  Sender: FDA-Public Use
  Company Number: DE-BAYER-2011-053021

PATIENT
  Age: 82 Year
  Sex: Male
  Weight: 80 kg

DRUGS (2)
  1. AVELOX [Suspect]
     Indication: RESPIRATORY TRACT INFECTION
     Dosage: 400 MG, UNK
     Route: 048
     Dates: start: 20110608, end: 20110611
  2. KEPPRA [Concomitant]
     Indication: EPILEPSY
     Dosage: UNK UNK, QD

REACTIONS (5)
  - SOMNOLENCE [None]
  - DISORIENTATION [None]
  - DIZZINESS [None]
  - DEAFNESS [None]
  - HALLUCINATION, VISUAL [None]
